FAERS Safety Report 14911830 (Version 1)
Quarter: 2018Q2

REPORT INFORMATION
  Report Type: Spontaneous
  Country: GR (occurrence: GR)
  Receive Date: 20180518
  Receipt Date: 20180518
  Transmission Date: 20180711
  Serious: Yes (Other)
  Sender: FDA-Public Use
  Company Number: GR-009507513-1805GRC005682

PATIENT
  Age: 62 Year
  Sex: Male

DRUGS (2)
  1. SINTROM [Concomitant]
     Active Substance: ACENOCOUMAROL
     Indication: ATRIAL FIBRILLATION
     Dosage: UNK
     Dates: start: 2013
  2. REMERON [Suspect]
     Active Substance: MIRTAZAPINE
     Indication: DEPRESSION
     Dosage: 30 MG/TAB (DOSE: 1 TABLET DAILY)
     Route: 048
     Dates: start: 20180421

REACTIONS (7)
  - Product use in unapproved indication [Unknown]
  - Haemorrhagic diathesis [Unknown]
  - Epistaxis [Unknown]
  - Blood disorder [Unknown]
  - Purpura [Unknown]
  - Activated partial thromboplastin time prolonged [Unknown]
  - Arthropod bite [Unknown]

NARRATIVE: CASE EVENT DATE: 2018
